FAERS Safety Report 17162974 (Version 1)
Quarter: 2019Q4

REPORT INFORMATION
  Report Type: Spontaneous
  Country: US (occurrence: US)
  Receive Date: 20191216
  Receipt Date: 20191216
  Transmission Date: 20200122
  Serious: Yes (Life-Threatening)
  Sender: FDA-Public Use
  Company Number: None

PATIENT
  Age: 74 Year
  Sex: Male
  Weight: 94.4 kg

DRUGS (11)
  1. NORCO [Concomitant]
     Active Substance: ACETAMINOPHEN\HYDROCODONE BITARTRATE
  2. NEXIUM [Concomitant]
     Active Substance: ESOMEPRAZOLE MAGNESIUM
  3. ONDANSETRON [Concomitant]
     Active Substance: ONDANSETRON
  4. OLANZAPINE. [Concomitant]
     Active Substance: OLANZAPINE
  5. SENNA LAXATIVE [Concomitant]
     Active Substance: SENNOSIDES
  6. ACYCLOVIR. [Concomitant]
     Active Substance: ACYCLOVIR
  7. DOCUSATE SODIUM. [Concomitant]
     Active Substance: DOCUSATE SODIUM
  8. XPOVIO [Suspect]
     Active Substance: SELINEXOR
     Dosage: ?          OTHER FREQUENCY:DAYS 1 + 3 PER WK;?
     Route: 048
  9. DEXAMETHASONE. [Concomitant]
     Active Substance: DEXAMETHASONE
  10. ALBUTEROL SULFATE HFA [Concomitant]
     Active Substance: ALBUTEROL SULFATE
  11. FLUTICASONE-SALMETEROL [Concomitant]

REACTIONS (2)
  - Hospice care [None]
  - Disease progression [None]

NARRATIVE: CASE EVENT DATE: 20191216
